FAERS Safety Report 14356068 (Version 1)
Quarter: 2018Q1

REPORT INFORMATION
  Report Type: Spontaneous
  Country: RU (occurrence: RU)
  Receive Date: 20180105
  Receipt Date: 20180105
  Transmission Date: 20180509
  Serious: Yes (Other)
  Sender: FDA-Public Use
  Company Number: RU-TORRENT-00000031

PATIENT
  Age: 29 Year
  Sex: Female

DRUGS (3)
  1. OXCARBAZEPINE. [Suspect]
     Active Substance: OXCARBAZEPINE
     Indication: SEIZURE
  2. LAMOTRIGINE. [Suspect]
     Active Substance: LAMOTRIGINE
     Indication: PARTIAL SEIZURES
  3. LEVETIRACETAM. [Suspect]
     Active Substance: LEVETIRACETAM
     Indication: GENERALISED TONIC-CLONIC SEIZURE

REACTIONS (3)
  - Headache [Unknown]
  - Drug effect incomplete [Unknown]
  - Suicidal ideation [Unknown]
